FAERS Safety Report 18553510 (Version 7)
Quarter: 2022Q2

REPORT INFORMATION
  Report Type: Spontaneous
  Country: US (occurrence: US)
  Receive Date: 20201127
  Receipt Date: 20220412
  Transmission Date: 20220720
  Serious: Yes (Other)
  Sender: FDA-Public Use
  Company Number: US-GILEAD-2020-0505716

PATIENT
  Age: 42 Year
  Sex: Female
  Weight: 50.8 kg

DRUGS (9)
  1. VIREAD [Suspect]
     Active Substance: TENOFOVIR DISOPROXIL FUMARATE
     Indication: Hepatitis C
     Dosage: UNK
     Route: 048
     Dates: start: 201401, end: 20141231
  2. VIREAD [Suspect]
     Active Substance: TENOFOVIR DISOPROXIL FUMARATE
     Dosage: UNK
     Route: 048
     Dates: start: 2004, end: 2007
  3. VIREAD [Suspect]
     Active Substance: TENOFOVIR DISOPROXIL FUMARATE
     Dosage: UNK
     Route: 048
     Dates: start: 2014
  4. ACETAMINOPHEN [Concomitant]
     Active Substance: ACETAMINOPHEN
  5. AMOXICILLIN [Concomitant]
     Active Substance: AMOXICILLIN
  6. PREDNISONE [Concomitant]
     Active Substance: PREDNISONE
  7. FAMOTIDINE [Concomitant]
     Active Substance: FAMOTIDINE
  8. TYLENOL [Concomitant]
     Active Substance: ACETAMINOPHEN
  9. IBUPROFEN [Concomitant]
     Active Substance: IBUPROFEN

REACTIONS (19)
  - End stage renal disease [Not Recovered/Not Resolved]
  - Chronic kidney disease [Not Recovered/Not Resolved]
  - Pyelonephritis [Not Recovered/Not Resolved]
  - Chronic kidney disease-mineral and bone disorder [Not Recovered/Not Resolved]
  - Tubulointerstitial nephritis [Unknown]
  - Acute kidney injury [Unknown]
  - Renal failure [Not Recovered/Not Resolved]
  - Pyelonephritis chronic [Unknown]
  - Bone density decreased [Unknown]
  - Tooth loss [Unknown]
  - Nephropathy [Not Recovered/Not Resolved]
  - Protein total abnormal [Not Recovered/Not Resolved]
  - Protein total increased [Unknown]
  - Anaemia [Not Recovered/Not Resolved]
  - Blood creatinine increased [Not Recovered/Not Resolved]
  - Off label use [Unknown]
  - Bone demineralisation [Unknown]
  - Gait disturbance [Not Recovered/Not Resolved]
  - Loss of personal independence in daily activities [Not Recovered/Not Resolved]

NARRATIVE: CASE EVENT DATE: 20100101
